FAERS Safety Report 4486515-9 (Version None)
Quarter: 2004Q4

REPORT INFORMATION
  Report Type: 
  Country: None (occurrence: None)
  Receive Date: 20041021
  Receipt Date: 20041006
  Transmission Date: 20050328
  Serious: Yes (Life-Threatening, Hospitalization)
  Sender: FDA-Public Use
  Company Number: MAG-2004-0000305

PATIENT
  Age: 66 Year
  Sex: Male

DRUGS (13)
  1. OXYCONTIN [Suspect]
     Indication: CANCER PAIN
     Dosage: 10 MG, BID, ORAL
     Route: 048
     Dates: start: 20040913, end: 20041002
  2. VEGETAMIN (CHLORPROMAZINE HYDROCHLORIDE, PROMETHAZINE HYDROCHLORIDE, P [Concomitant]
  3. FLUMARIN (FLOMOXEF SODIUM) [Concomitant]
  4. NU LOTAN (LOSARTAN POTASSIUM) [Concomitant]
  5. CARDENALIN (DOXAZOSIN MESILATE)Q [Concomitant]
  6. DEPAS (ETIZOLAM) [Concomitant]
  7. PENFILL R (INSULIN HUMAN) [Concomitant]
  8. MILMAG (MAGNESIUM HYDROXIDE) [Concomitant]
  9. VEEN D (SODIUM CHLORIDE, POTASSIUM CHLORIDE, SODIUM ACETATE, GLUCOSE) [Concomitant]
  10. FENTANYL [Concomitant]
  11. HYPEN (ETODOLAC) [Concomitant]
  12. MORPHINE [Concomitant]
  13. LEVOTOMIN (LEVOMEPROMAZINE MALEATE) [Concomitant]

REACTIONS (8)
  - BLOOD GLUCOSE DECREASED [None]
  - DELIRIUM [None]
  - DEPRESSION [None]
  - DYSPHORIA [None]
  - EATING DISORDER [None]
  - GENERAL PHYSICAL HEALTH DETERIORATION [None]
  - MALIGNANT NEOPLASM PROGRESSION [None]
  - MENTAL DISORDER [None]
